FAERS Safety Report 5680086-7 (Version None)
Quarter: 2008Q1

REPORT INFORMATION
  Report Type: 
  Country: None (occurrence: None)
  Receive Date: 20080326
  Receipt Date: 20080219
  Transmission Date: 20080703
  Serious: No
  Sender: FDA-Public Use
  Company Number: US-BAYER-200815404NA

PATIENT

DRUGS (1)
  1. ULTRAVIST (PHARMACY BULK) [Suspect]
     Indication: DRUG USE FOR UNKNOWN INDICATION
     Dates: start: 20080219, end: 20080219

REACTIONS (5)
  - DYSPHONIA [None]
  - EYE PRURITUS [None]
  - LACRIMATION INCREASED [None]
  - NASAL CONGESTION [None]
  - THROAT IRRITATION [None]
